FAERS Safety Report 14600220 (Version 1)
Quarter: 2018Q1

REPORT INFORMATION
  Report Type: Spontaneous
  Country: US (occurrence: US)
  Receive Date: 20180305
  Receipt Date: 20180305
  Transmission Date: 20180509
  Serious: Yes (Other)
  Sender: FDA-Public Use
  Company Number: US-BAYER-2018-037798

PATIENT
  Age: 45 Year
  Sex: Male

DRUGS (1)
  1. ALIQOPA [Suspect]
     Active Substance: COPANLISIB
     Indication: B-CELL LYMPHOMA RECURRENT
     Dosage: 60 MG, FOR 4 CYCLES
     Route: 042
     Dates: start: 201710

REACTIONS (3)
  - B-cell lymphoma recurrent [Unknown]
  - Platelet count decreased [Unknown]
  - Nodule [Unknown]

NARRATIVE: CASE EVENT DATE: 201802
